FAERS Safety Report 16642081 (Version 1)
Quarter: 2019Q3

REPORT INFORMATION
  Report Type: Spontaneous
  Country: NO (occurrence: NO)
  Receive Date: 20190729
  Receipt Date: 20190729
  Transmission Date: 20191004
  Serious: Yes (Other)
  Sender: FDA-Public Use
  Company Number: NO-TAKEDA-2019TUS045422

PATIENT
  Age: 26 Year
  Sex: Female
  Weight: 85 kg

DRUGS (1)
  1. BRINTELLIX [Suspect]
     Active Substance: VORTIOXETINE HYDROBROMIDE
     Indication: PAIN
     Dosage: 10 MILLIGRAM, QD
     Route: 065
     Dates: start: 20190611

REACTIONS (8)
  - Dissociation [Recovering/Resolving]
  - Depressed mood [Recovering/Resolving]
  - Anger [Recovering/Resolving]
  - Tachyphrenia [Recovering/Resolving]
  - Suicidal ideation [Recovered/Resolved]
  - Restlessness [Recovering/Resolving]
  - Nightmare [Recovered/Resolved with Sequelae]
  - Product use in unapproved indication [Unknown]

NARRATIVE: CASE EVENT DATE: 20190612
